FAERS Safety Report 25440026 (Version 1)
Quarter: 2025Q2

REPORT INFORMATION
  Report Type: Spontaneous
  Country: GB (occurrence: GB)
  Receive Date: 20250616
  Receipt Date: 20250616
  Transmission Date: 20250716
  Serious: Yes (Other)
  Sender: MYLAN
  Company Number: None

PATIENT
  Age: 24 Year
  Sex: Male

DRUGS (4)
  1. FINASTERIDE [Suspect]
     Active Substance: FINASTERIDE
     Indication: Product used for unknown indication
     Dosage: 1 MILLIGRAM, QD
     Dates: start: 20250210, end: 20250610
  2. FINASTERIDE [Suspect]
     Active Substance: FINASTERIDE
     Dosage: 1 MILLIGRAM, QD
     Route: 065
     Dates: start: 20250210, end: 20250610
  3. FINASTERIDE [Suspect]
     Active Substance: FINASTERIDE
     Dosage: 1 MILLIGRAM, QD
     Route: 065
     Dates: start: 20250210, end: 20250610
  4. FINASTERIDE [Suspect]
     Active Substance: FINASTERIDE
     Dosage: 1 MILLIGRAM, QD
     Dates: start: 20250210, end: 20250610

REACTIONS (1)
  - Depressed mood [Not Recovered/Not Resolved]

NARRATIVE: CASE EVENT DATE: 20250508
